FAERS Safety Report 6397476-X (Version None)
Quarter: 2009Q4

REPORT INFORMATION
  Report Type: 
  Country: None (occurrence: None)
  Receive Date: 20091012
  Receipt Date: 20091007
  Transmission Date: 20100525
  Serious: Yes (Death)
  Sender: FDA-Public Use
  Company Number: NZ-ASTRAZENECA-2009SE18756

PATIENT
  Age: 10409 Day
  Sex: Female

DRUGS (3)
  1. QUETIAPINE [Suspect]
     Indication: SCHIZOPHRENIA
     Route: 048
     Dates: start: 20030317, end: 20030427
  2. LEVOTHYROXINE SODIUM [Concomitant]
     Indication: HYPOTHYROIDISM
     Route: 048
     Dates: start: 20030118, end: 20030427
  3. CLOZAPINE [Concomitant]
     Indication: SCHIZOPHRENIA
     Route: 048
     Dates: start: 20030307, end: 20030427

REACTIONS (1)
  - SUDDEN DEATH [None]
